FAERS Safety Report 11618077 (Version 1)
Quarter: 2015Q4

REPORT INFORMATION
  Report Type: Spontaneous
  Country: BR (occurrence: BR)
  Receive Date: 20151010
  Receipt Date: 20151010
  Transmission Date: 20160304
  Serious: Yes (Other)
  Sender: FDA-Public Use
  Company Number: BR-SYMPLMED PHARMACEUTICALS-2015SYM00216

PATIENT
  Age: 69 Year
  Sex: Female

DRUGS (4)
  1. ACEON [Suspect]
     Active Substance: PERINDOPRIL ERBUMINE
     Indication: HYPERTENSION
     Dosage: 10 MG, QD
     Route: 048
     Dates: start: 20150902, end: 20150902
  2. DILTIAZEM HYDROCHLORIDE. [Concomitant]
     Active Substance: DILTIAZEM HYDROCHLORIDE
     Indication: TACHYCARDIA
     Dosage: 60 MG, BID
  3. ACEON [Suspect]
     Active Substance: PERINDOPRIL ERBUMINE
     Dosage: 5 MG, QD
     Route: 048
     Dates: start: 20150903, end: 20150903
  4. ACEON [Suspect]
     Active Substance: PERINDOPRIL ERBUMINE
     Dosage: 2.5 MG, QD
     Route: 048
     Dates: start: 20150903, end: 20150903

REACTIONS (5)
  - Tachycardia [Not Recovered/Not Resolved]
  - Incorrect dose administered [Not Recovered/Not Resolved]
  - Peripheral coldness [Not Recovered/Not Resolved]
  - Headache [Not Recovered/Not Resolved]
  - Hypotension [Not Recovered/Not Resolved]

NARRATIVE: CASE EVENT DATE: 20150902
